FAERS Safety Report 4951399-9 (Version None)
Quarter: 2006Q1

REPORT INFORMATION
  Report Type: 
  Country: None (occurrence: None)
  Receive Date: 20060323
  Receipt Date: 20060313
  Transmission Date: 20060701
  Serious: Yes (Hospitalization)
  Sender: FDA-Public Use
  Company Number: US-JNJFOC-20060303999

PATIENT
  Sex: Male
  Weight: 97.07 kg

DRUGS (3)
  1. DURAGESIC-100 [Suspect]
     Route: 062
  2. MAXZIDE [Concomitant]
  3. MAXZIDE [Concomitant]
     Indication: HYPERTENSION

REACTIONS (2)
  - ARTHRALGIA [None]
  - JOINT DISLOCATION [None]
